FAERS Safety Report 17137328 (Version 1)
Quarter: 2019Q4

REPORT INFORMATION
  Report Type: Spontaneous
  Country: US (occurrence: US)
  Receive Date: 20191118
  Receipt Date: 20191118
  Transmission Date: 20200122
  Serious: Yes (Hospitalization)
  Sender: FDA-Public Use
  Company Number: None

PATIENT
  Age: 58 Day
  Sex: Male
  Weight: 175.54 kg

DRUGS (1)
  1. WARFARIN [Suspect]
     Active Substance: WARFARIN
     Indication: ATRIAL FIBRILLATION
     Dates: start: 20160526

REACTIONS (8)
  - Anaemia [None]
  - Gastrointestinal haemorrhage [None]
  - Therapy cessation [None]
  - Haemoglobin decreased [None]
  - International normalised ratio increased [None]
  - Platelet count decreased [None]
  - Haematocrit decreased [None]
  - Colon adenoma [None]

NARRATIVE: CASE EVENT DATE: 20190821
